FAERS Safety Report 22309992 (Version 1)
Quarter: 2023Q2

REPORT INFORMATION
  Report Type: Spontaneous
  Country: US (occurrence: None)
  Receive Date: 20230510
  Receipt Date: 20230510
  Transmission Date: 20230721
  Serious: Yes (Disabling)
  Sender: FDA-Public Use
  Company Number: None

PATIENT
  Age: 41 Year
  Sex: Female
  Weight: 55.8 kg

DRUGS (10)
  1. QULIPTA [Suspect]
     Active Substance: ATOGEPANT
     Indication: Migraine
     Dosage: OTHER QUANTITY : 1 TABLET(S);?FREQUENCY : DAILY;?
     Route: 048
     Dates: end: 20230203
  2. Q var [Concomitant]
  3. DYSPORT [Concomitant]
     Active Substance: ABOBOTULINUMTOXINA
  4. UBRELVY [Concomitant]
     Active Substance: UBROGEPANT
  5. HYOSCYAMINE [Concomitant]
     Active Substance: HYOSCYAMINE
  6. PANTOPRAZOLE [Concomitant]
     Active Substance: PANTOPRAZOLE
  7. VITAMIN D [Concomitant]
     Active Substance: VITAMIN D NOS
  8. FISH OIL [Concomitant]
     Active Substance: FISH OIL
  9. COENZYME Q10 [Concomitant]
     Active Substance: DIETARY SUPPLEMENT\UBIDECARENONE
  10. MAGNESIUM [Concomitant]
     Active Substance: MAGNESIUM

REACTIONS (5)
  - Abdominal pain upper [None]
  - Abdominal distension [None]
  - Abdominal distension [None]
  - Fatigue [None]
  - Impaired gastric emptying [None]

NARRATIVE: CASE EVENT DATE: 20220310
